FAERS Safety Report 6635554-8 (Version None)
Quarter: 2010Q1

REPORT INFORMATION
  Report Type: 
  Country: None (occurrence: None)
  Receive Date: 20100315
  Receipt Date: 20100112
  Transmission Date: 20100710
  Serious: No
  Sender: FDA-Public Use
  Company Number: US-ABBOTT-10P-163-0619506-00

PATIENT
  Sex: Male
  Weight: 92.162 kg

DRUGS (9)
  1. DEPAKOTE [Suspect]
     Indication: SCHIZOAFFECTIVE DISORDER
     Route: 048
     Dates: start: 19980101
  2. DIVALPROEX SODIUM (GENERIC) [Suspect]
     Indication: SCHIZOAFFECTIVE DISORDER
     Dates: end: 20090901
  3. DEPAKOTE ER [Suspect]
     Indication: SCHIZOAFFECTIVE DISORDER
     Route: 048
     Dates: start: 20090901, end: 20100110
  4. DEPAKOTE ER [Suspect]
     Dosage: 1/2 - 500 MG TABLET
     Dates: start: 20100111
  5. ABILIFY [Concomitant]
     Indication: SCHIZOAFFECTIVE DISORDER
     Route: 048
  6. LEXAPRO [Concomitant]
     Indication: ANTIDEPRESSANT THERAPY
     Route: 048
  7. AVAPRO [Concomitant]
     Indication: HYPERTENSION
     Route: 048
  8. ALPHAGAN [Concomitant]
     Indication: INTRAOCULAR PRESSURE INCREASED
     Route: 047
  9. PROVIGIL [Concomitant]
     Indication: SLEEP APNOEA SYNDROME
     Route: 048

REACTIONS (4)
  - CONTUSION [None]
  - GINGIVAL BLEEDING [None]
  - TOOTH LOSS [None]
  - WRONG TECHNIQUE IN DRUG USAGE PROCESS [None]
